FAERS Safety Report 9112997 (Version 1)
Quarter: 2013Q1

REPORT INFORMATION
  Report Type: Report from Study
  Country: IT (occurrence: IT)
  Receive Date: 20130211
  Receipt Date: 20130211
  Transmission Date: 20140127
  Serious: Yes (Other)
  Sender: FDA-Public Use
  Company Number: IT-BAYER-2013-015280

PATIENT
  Age: 44 Year
  Sex: Male

DRUGS (3)
  1. ACETYLSALICYLIC ACID({=100 MG) [Suspect]
     Indication: CORONARY ARTERIAL STENT INSERTION
     Dosage: DAILY DOSE 100 MG
  2. CLOPIDOGREL [Interacting]
     Indication: CORONARY ARTERIAL STENT INSERTION
     Dosage: DAILY DOSE 75 MG
  3. WARFARIN [Interacting]
     Indication: PULMONARY EMBOLISM

REACTIONS (2)
  - Lower gastrointestinal haemorrhage [None]
  - Drug interaction [None]
